FAERS Safety Report 9796377 (Version 2)
Quarter: 2014Q1

REPORT INFORMATION
  Report Type: Spontaneous
  Country: US (occurrence: US)
  Receive Date: 20140103
  Receipt Date: 20140128
  Transmission Date: 20141002
  Serious: Yes (Life-Threatening, Hospitalization, Other)
  Sender: FDA-Public Use
  Company Number: US-PFIZER INC-2013373264

PATIENT
  Age: 51 Year
  Sex: 0

DRUGS (6)
  1. EFFEXOR XR [Suspect]
     Indication: DEPRESSION
     Dosage: 75MG X 3, DAILY
     Route: 048
     Dates: start: 2000
  2. ATENOLOL/CHLORTHALIDONE [Concomitant]
     Dosage: ATENOLOL 100/CHLORTHALIDONE 25, UNK
  3. ARMOUR [Concomitant]
     Dosage: 60 MG, UNK
  4. XANAX [Concomitant]
     Dosage: 0.5 UNK, UNK
  5. ASPIRIN [Concomitant]
     Dosage: UNK
  6. VITAMIN D [Concomitant]
     Dosage: UNK

REACTIONS (9)
  - Drug withdrawal syndrome [Unknown]
  - Suicidal ideation [Unknown]
  - Activities of daily living impaired [Unknown]
  - Irritability [Unknown]
  - Crying [Unknown]
  - Migraine [Unknown]
  - Feeling abnormal [Unknown]
  - Depression [Unknown]
  - Bedridden [Unknown]
